FAERS Safety Report 23698561 (Version 2)
Quarter: 2024Q2

REPORT INFORMATION
  Report Type: Spontaneous
  Country: US (occurrence: US)
  Receive Date: 20240402
  Receipt Date: 20240612
  Transmission Date: 20240715
  Serious: No
  Sender: FDA-Public Use
  Company Number: US-SA-SAC20240327000192

PATIENT
  Sex: Female
  Weight: 99.79 kg

DRUGS (3)
  1. DUPIXENT [Suspect]
     Active Substance: DUPILUMAB
     Indication: Dermatitis
     Dosage: 300 MG, QOW
     Route: 058
  2. DUPIXENT [Suspect]
     Active Substance: DUPILUMAB
     Indication: Dermatitis atopic
  3. DUPIXENT [Suspect]
     Active Substance: DUPILUMAB
     Indication: Illness

REACTIONS (6)
  - Wheezing [Unknown]
  - Skin swelling [Recovering/Resolving]
  - Pruritus [Recovering/Resolving]
  - Rash [Unknown]
  - Product dose omission issue [Unknown]
  - Product use in unapproved indication [Unknown]
